FAERS Safety Report 23081092 (Version 1)
Quarter: 2023Q4

REPORT INFORMATION
  Report Type: Spontaneous
  Country: RU (occurrence: RU)
  Receive Date: 20231018
  Receipt Date: 20231018
  Transmission Date: 20240109
  Serious: Yes (Life-Threatening, Other)
  Sender: FDA-Public Use
  Company Number: RU-BEXIMCO-2023BEX00066

PATIENT
  Age: 80 Year

DRUGS (2)
  1. SOTALOL HYDROCHLORIDE [Suspect]
     Active Substance: SOTALOL HYDROCHLORIDE
     Indication: Ventricular extrasystoles
     Dosage: 160 MG PER DAY
     Dates: start: 2020
  2. ETHACIZINE [Suspect]
     Active Substance: ETHACIZINE
     Indication: Ventricular extrasystoles
     Dosage: 150 MG PER DAY
     Dates: start: 2020

REACTIONS (4)
  - Acute myocardial infarction [Unknown]
  - Ventricular tachycardia [Unknown]
  - Clinical death [Recovered/Resolved]
  - Contraindicated product administered [Unknown]

NARRATIVE: CASE EVENT DATE: 20200101
